FAERS Safety Report 25260007 (Version 2)
Quarter: 2025Q4

REPORT INFORMATION
  Report Type: Report from Study
  Country: US (occurrence: US)
  Receive Date: 20250501
  Receipt Date: 20251021
  Transmission Date: 20260118
  Serious: Yes (Hospitalization, Other)
  Sender: ABBVIE
  Company Number: US-ABBVIE-6191347

PATIENT
  Age: 63 Year
  Sex: Female

DRUGS (2)
  1. RINVOQ [Suspect]
     Active Substance: UPADACITINIB
     Indication: Rheumatoid arthritis
     Route: 048
     Dates: start: 20241104
  2. OZEMPIC [Suspect]
     Active Substance: SEMAGLUTIDE
     Indication: Product used for unknown indication
     Dosage: DRUG STOP DATE: 2025
     Route: 065
     Dates: start: 202503

REACTIONS (8)
  - Cerebrovascular accident [Recovered/Resolved]
  - Hepatic cirrhosis [Not Recovered/Not Resolved]
  - Pancreatic failure [Unknown]
  - Cerebrovascular accident [Recovering/Resolving]
  - Pancreatic enzymes decreased [Not Recovered/Not Resolved]
  - Memory impairment [Unknown]
  - General physical health deterioration [Unknown]
  - Feeling abnormal [Unknown]

NARRATIVE: CASE EVENT DATE: 20241101
